FAERS Safety Report 12648095 (Version 2)
Quarter: 2016Q4

REPORT INFORMATION
  Report Type: Spontaneous
  Country: US (occurrence: US)
  Receive Date: 20160812
  Receipt Date: 20161114
  Transmission Date: 20170207
  Serious: Yes (Other)
  Sender: FDA-Public Use
  Company Number: US-IROKO PHARMACEUTICALS LLC-US-I09001-16-00131

PATIENT
  Age: 56 Year
  Sex: Female

DRUGS (1)
  1. ZORVOLEX [Suspect]
     Active Substance: DICLOFENAC
     Indication: SPINAL DISORDER
     Route: 048
     Dates: start: 20141008, end: 20141107

REACTIONS (1)
  - Gastric ulcer haemorrhage [Unknown]
